FAERS Safety Report 24778779 (Version 1)
Quarter: 2024Q4

REPORT INFORMATION
  Report Type: Spontaneous
  Country: US (occurrence: US)
  Receive Date: 20241226
  Receipt Date: 20241226
  Transmission Date: 20250114
  Serious: Yes (Other)
  Sender: DR REDDYS
  Company Number: US-DRL-USA-LIT/USA/24/0018888

PATIENT
  Age: 37 Year
  Sex: Female

DRUGS (2)
  1. ELIGLUSTAT [Suspect]
     Active Substance: ELIGLUSTAT
     Indication: Gaucher^s disease type I
     Dosage: 84 MG OF ELIGLUSTAT TWICE DAILY
  2. ELIGLUSTAT [Suspect]
     Active Substance: ELIGLUSTAT
     Dosage: DECREASED THE DOSE OF ELIGLUSTAT BY 50 PERCENT

REACTIONS (1)
  - Ichthyosis [Recovering/Resolving]
